FAERS Safety Report 17298716 (Version 5)
Quarter: 2020Q3

REPORT INFORMATION
  Report Type: Spontaneous
  Country: US (occurrence: US)
  Receive Date: 20200122
  Receipt Date: 20200711
  Transmission Date: 20201102
  Serious: No
  Sender: FDA-Public Use
  Company Number: US-BIOGEN-2019BI00761167

PATIENT
  Age: 51 Year
  Sex: Female

DRUGS (5)
  1. TECFIDERA [Suspect]
     Active Substance: DIMETHYL FUMARATE
     Route: 048
     Dates: start: 20190703, end: 20191031
  2. TECFIDERA [Suspect]
     Active Substance: DIMETHYL FUMARATE
     Route: 048
     Dates: start: 20190629, end: 202001
  3. TECFIDERA [Suspect]
     Active Substance: DIMETHYL FUMARATE
     Indication: MULTIPLE SCLEROSIS
     Route: 048
     Dates: start: 20190626, end: 20190702
  4. TECFIDERA [Suspect]
     Active Substance: DIMETHYL FUMARATE
     Route: 048
     Dates: start: 20191101
  5. TECFIDERA [Suspect]
     Active Substance: DIMETHYL FUMARATE
     Route: 048
     Dates: start: 20190626

REACTIONS (12)
  - Prescribed underdose [Not Recovered/Not Resolved]
  - Blood oestrogen abnormal [Recovered/Resolved]
  - Insomnia [Unknown]
  - Influenza [Recovered/Resolved]
  - Pruritus [Unknown]
  - Decreased immune responsiveness [Unknown]
  - Hot flush [Unknown]
  - Hyperhidrosis [Unknown]
  - Intentional dose omission [Not Recovered/Not Resolved]
  - Gastroenteritis viral [Recovered/Resolved]
  - Headache [Unknown]
  - Flushing [Unknown]

NARRATIVE: CASE EVENT DATE: 20190729
